FAERS Safety Report 19206274 (Version 1)
Quarter: 2021Q2

REPORT INFORMATION
  Report Type: Spontaneous
  Country: US (occurrence: US)
  Receive Date: 20210503
  Receipt Date: 20210503
  Transmission Date: 20210717
  Serious: Yes (Other)
  Sender: FDA-Public Use
  Company Number: US-SA-2021SA142868

PATIENT
  Age: 73 Year
  Sex: Female

DRUGS (2)
  1. CORTIZONE 10 [Suspect]
     Active Substance: HYDROCORTISONE
     Dosage: UNK
     Route: 065
  2. HUMIRA [Suspect]
     Active Substance: ADALIMUMAB
     Indication: RHEUMATOID ARTHRITIS
     Dosage: UNK
     Route: 058
     Dates: start: 2019

REACTIONS (3)
  - Musculoskeletal pain [Not Recovered/Not Resolved]
  - Joint instability [Not Recovered/Not Resolved]
  - Knee arthroplasty [Not Recovered/Not Resolved]
